FAERS Safety Report 17097495 (Version 1)
Quarter: 2019Q4

REPORT INFORMATION
  Report Type: Report from Study
  Country: BE (occurrence: BE)
  Receive Date: 20191202
  Receipt Date: 20191202
  Transmission Date: 20200122
  Serious: No
  Sender: FDA-Public Use
  Company Number: BE-BEH-2019110019

PATIENT
  Sex: Male

DRUGS (2)
  1. HIZENTRA [Suspect]
     Active Substance: HUMAN IMMUNOGLOBULIN G
     Dosage: 9 GRAM (45 ML), TOT
     Route: 042
     Dates: start: 20191124, end: 20191124
  2. HIZENTRA [Suspect]
     Active Substance: HUMAN IMMUNOGLOBULIN G
     Dosage: 9 GRAM (45 ML), QW
     Route: 042
     Dates: start: 20191016

REACTIONS (4)
  - Injection site erythema [Unknown]
  - No adverse event [Unknown]
  - Injection site pruritus [Unknown]
  - Incorrect route of product administration [Unknown]
